FAERS Safety Report 4408670-9 (Version None)
Quarter: 2004Q3

REPORT INFORMATION
  Report Type: 
  Country: None (occurrence: None)
  Receive Date: 20040722
  Receipt Date: 20040708
  Transmission Date: 20050211
  Serious: Yes (Hospitalization)
  Sender: FDA-Public Use
  Company Number: 173739

PATIENT
  Age: 42 Year
  Sex: Male

DRUGS (1)
  1. AVONEX [Suspect]
     Indication: MULTIPLE SCLEROSIS
     Dosage: 15 MCG QW IM
     Route: 030
     Dates: start: 20030526, end: 20030527

REACTIONS (4)
  - DYSKINESIA [None]
  - HYPERHIDROSIS [None]
  - MYOCARDIAL INFARCTION [None]
  - PERIPHERAL COLDNESS [None]
